FAERS Safety Report 21826422 (Version 1)
Quarter: 2023Q1

REPORT INFORMATION
  Report Type: Report from Study
  Country: US (occurrence: US)
  Receive Date: 20230106
  Receipt Date: 20230106
  Transmission Date: 20230418
  Serious: No
  Sender: FDA-Public Use
  Company Number: US-ABBVIE-4230404

PATIENT
  Sex: Male

DRUGS (1)
  1. HUMIRA [Suspect]
     Active Substance: ADALIMUMAB
     Indication: Psoriasis
     Dosage: CITRATE FREE, 40 MG
     Route: 058
     Dates: start: 20190214

REACTIONS (3)
  - Joint stiffness [Not Recovered/Not Resolved]
  - Psoriasis [Not Recovered/Not Resolved]
  - Nail disorder [Not Recovered/Not Resolved]
